FAERS Safety Report 7674589-3 (Version None)
Quarter: 2011Q3

REPORT INFORMATION
  Report Type: 
  Country: None (occurrence: None)
  Receive Date: 20110810
  Receipt Date: 20110802
  Transmission Date: 20111222
  Serious: Yes (Hospitalization)
  Sender: FDA-Public Use
  Company Number: CA-ROCHE-791509

PATIENT
  Sex: Male
  Weight: 80 kg

DRUGS (8)
  1. TOCILIZUMAB [Suspect]
     Indication: RHEUMATOID ARTHRITIS
     Route: 042
     Dates: start: 20101110, end: 20110705
  2. MOBICOX [Concomitant]
  3. HYDROMORPHONE HCL [Concomitant]
  4. TOCILIZUMAB [Suspect]
     Route: 042
     Dates: start: 20110510, end: 20110705
  5. LEUCOVORIN CALCIUM [Concomitant]
  6. FOLIC ACID [Concomitant]
  7. PRILOSEC [Concomitant]
  8. METHOTREXATE [Concomitant]

REACTIONS (3)
  - DELUSION [None]
  - DEHYDRATION [None]
  - ABDOMINAL PAIN [None]
